FAERS Safety Report 8040213-3 (Version None)
Quarter: 2012Q1

REPORT INFORMATION
  Report Type: 
  Country: None (occurrence: None)
  Receive Date: 20120111
  Receipt Date: 20111223
  Transmission Date: 20120608
  Serious: No
  Sender: FDA-Public Use
  Company Number: US-AMGEN-USASP2011064269

PATIENT
  Age: 15 Year
  Sex: Female
  Weight: 64 kg

DRUGS (9)
  1. ENBREL [Suspect]
     Indication: TENDONITIS
  2. SIMPONI [Concomitant]
     Dosage: UNK
  3. RELAFEN [Concomitant]
     Indication: TENDONITIS
     Dosage: 100 MG, BID
     Route: 048
     Dates: start: 20090904
  4. METHOTREXATE [Concomitant]
     Indication: TENDONITIS
     Dosage: 25 MG, QWK
     Dates: start: 20111031
  5. LEXAPRO [Concomitant]
     Dosage: 30 MG, QD
     Route: 048
     Dates: start: 20101105
  6. ENBREL [Suspect]
     Indication: JUVENILE ARTHRITIS
     Dosage: 50 MG, QWK
     Route: 058
     Dates: start: 20100903
  7. HUMIRA [Concomitant]
     Dosage: UNK
  8. ERGOCALCIFEROL [Concomitant]
     Indication: VITAMIN SUPPLEMENTATION
     Dosage: 50000 UNK, QWK
     Route: 048
  9. PREDNISONE TAB [Concomitant]
     Indication: TENDONITIS
     Dosage: 5 MG, QD
     Route: 048
     Dates: start: 20111103

REACTIONS (3)
  - INJECTION SITE PAIN [None]
  - ARTHRALGIA [None]
  - DRUG INEFFECTIVE [None]
